FAERS Safety Report 19295886 (Version 2)
Quarter: 2021Q2

REPORT INFORMATION
  Report Type: Spontaneous
  Country: JP (occurrence: JP)
  Receive Date: 20210524
  Receipt Date: 20210615
  Transmission Date: 20210717
  Serious: Yes (Life-Threatening)
  Sender: FDA-Public Use
  Company Number: JP-CELGENEUS-JPN-20210505495

PATIENT
  Age: 73 Year
  Sex: Male

DRUGS (4)
  1. GEMCITABINE. [Suspect]
     Active Substance: GEMCITABINE
     Route: 041
     Dates: start: 202010
  2. GEMCITABINE. [Suspect]
     Active Substance: GEMCITABINE
     Indication: PANCREATIC CARCINOMA
     Route: 041
  3. ABRAXANE [Suspect]
     Active Substance: PACLITAXEL
     Indication: PANCREATIC CARCINOMA
     Route: 041
  4. TS?1 [Concomitant]
     Active Substance: GIMERACIL\OTERACIL\TEGAFUR
     Indication: PANCREATIC CARCINOMA
     Route: 065
     Dates: start: 202010

REACTIONS (1)
  - Interstitial lung disease [Unknown]
